FAERS Safety Report 6696271-1 (Version None)
Quarter: 2010Q2

REPORT INFORMATION
  Report Type: 
  Country: None (occurrence: None)
  Receive Date: 20100426
  Receipt Date: 20100416
  Transmission Date: 20101027
  Serious: Yes (Death, Hospitalization, Other)
  Sender: FDA-Public Use
  Company Number: US-CELGENEUS-163-50794-09120601

PATIENT
  Sex: Female

DRUGS (1)
  1. VIDAZA [Suspect]
     Route: 051
     Dates: start: 20081007, end: 20090325

REACTIONS (5)
  - DRUG INEFFECTIVE [None]
  - FEBRILE NEUTROPENIA [None]
  - NEOPLASM PROGRESSION [None]
  - PANCYTOPENIA [None]
  - STAPHYLOCOCCAL INFECTION [None]
